FAERS Safety Report 7813946-9 (Version None)
Quarter: 2011Q4

REPORT INFORMATION
  Report Type: 
  Country: None (occurrence: None)
  Receive Date: 20111011
  Receipt Date: 20110926
  Transmission Date: 20120403
  Serious: Yes (Hospitalization)
  Sender: FDA-Public Use
  Company Number: 2011SP045411

PATIENT
  Age: 49 Year
  Sex: Male

DRUGS (8)
  1. CEFTRIAXONE [Suspect]
     Indication: PRODUCT USED FOR UNKNOWN INDICATION
     Dosage: 1 GBQ, BID, IV
     Route: 042
     Dates: start: 20110524, end: 20110608
  2. METOPROLOL TARTRATE [Concomitant]
  3. DESLORATADINE [Suspect]
     Indication: PRODUCT USED FOR UNKNOWN INDICATION
     Dosage: 5 MG, QD, PO
     Route: 048
     Dates: start: 20110528, end: 20110608
  4. ASPIRIN [Suspect]
     Indication: PRODUCT USED FOR UNKNOWN INDICATION
     Dosage: 3000 MG, QD, PO
     Route: 048
     Dates: start: 20110524, end: 20110608
  5. LOVENOX [Concomitant]
  6. ACETAMINOPHEN [Concomitant]
  7. ROVAMYCINE (SPIRAMYCIN) [Suspect]
     Indication: PRODUCT USED FOR UNKNOWN INDICATION
     Dosage: 18 KIU,QD,PO
     Route: 048
     Dates: start: 20110525, end: 20110608
  8. RABEPRAZOLE SODIUM [Concomitant]

REACTIONS (2)
  - VASCULITIS NECROTISING [None]
  - LEUKOCYTOCLASTIC VASCULITIS [None]
